FAERS Safety Report 4449843-9 (Version None)
Quarter: 2004Q3

REPORT INFORMATION
  Report Type: 
  Country: None (occurrence: None)
  Receive Date: 20040803
  Receipt Date: 20031010
  Transmission Date: 20050211
  Serious: Yes (Hospitalization)
  Sender: FDA-Public Use
  Company Number: CERZ-10421

PATIENT
  Age: 3 Year
  Sex: Female
  Weight: 13 kg

DRUGS (8)
  1. CEREZYME [Suspect]
     Indication: GAUCHER'S DISEASE
     Dosage: 800 UNITS Q2WKS IV
     Route: 042
     Dates: start: 20010208
  2. VALPROATE SODIUM [Concomitant]
  3. ZONISAMIDE [Concomitant]
  4. CLONAZEPAM [Concomitant]
  5. TRICLOFOS SODIUM [Concomitant]
  6. ETHYL LOFLAZEPATE [Concomitant]
  7. FUROSEMIDE [Concomitant]
  8. SPIRONOLACTONE [Concomitant]

REACTIONS (1)
  - PNEUMONIA [None]
